FAERS Safety Report 6425000-1 (Version None)
Quarter: 2009Q4

REPORT INFORMATION
  Report Type: 
  Country: None (occurrence: None)
  Receive Date: 20091103
  Receipt Date: 20091021
  Transmission Date: 20100525
  Serious: Yes (Hospitalization)
  Sender: FDA-Public Use
  Company Number: FR-PFIZER INC-2009276631

PATIENT
  Age: 75 Year

DRUGS (11)
  1. CAMPTOSAR [Suspect]
     Dosage: 300 MG, CYCLIC
     Route: 042
     Dates: start: 20090713
  2. ERBITUX [Concomitant]
     Dosage: 835 MG, CYCLIC
     Route: 042
     Dates: start: 20090713, end: 20090713
  3. LOPRESSOR [Concomitant]
  4. KARDEGIC [Concomitant]
  5. EZETROL [Concomitant]
  6. CRESTOR [Concomitant]
  7. TRIATEC [Concomitant]
  8. SODIUM CHLORIDE [Concomitant]
  9. ONDANSETRON [Concomitant]
     Route: 042
  10. SOLU-MEDROL [Concomitant]
     Route: 042
  11. POLARAMINE [Concomitant]
     Route: 042

REACTIONS (4)
  - DIARRHOEA [None]
  - FEBRILE BONE MARROW APLASIA [None]
  - RASH MACULAR [None]
  - URTICARIA [None]
